FAERS Safety Report 5578166-X (Version None)
Quarter: 2007Q4

REPORT INFORMATION
  Report Type: 
  Country: None (occurrence: None)
  Receive Date: 20071231
  Receipt Date: 20071218
  Transmission Date: 20080405
  Serious: Yes (Hospitalization)
  Sender: FDA-Public Use
  Company Number: US-PFIZER INC-2007107439

PATIENT
  Sex: Female

DRUGS (2)
  1. CHANTIX [Suspect]
     Indication: EX-SMOKER
     Dates: start: 20071101, end: 20071215
  2. DRUG, UNSPECIFIED [Concomitant]

REACTIONS (3)
  - ABNORMAL BEHAVIOUR [None]
  - HOMICIDAL IDEATION [None]
  - SUICIDAL IDEATION [None]
